FAERS Safety Report 6618521-X (Version None)
Quarter: 2010Q1

REPORT INFORMATION
  Report Type: 
  Country: None (occurrence: None)
  Receive Date: 20100308
  Receipt Date: 20100303
  Transmission Date: 20100710
  Serious: Yes (Disabling)
  Sender: FDA-Public Use
  Company Number: US-TEVA-222792USA

PATIENT
  Sex: Female

DRUGS (2)
  1. FLUCONAZOLE 50 MG, 100 MG, 150 MG + 200 MG TABLETS [Suspect]
     Indication: URINARY TRACT INFECTION
     Route: 048
  2. FLUCONAZOLE 50 MG, 100 MG, 150 MG + 200 MG TABLETS [Suspect]
     Indication: ORAL CANDIDIASIS

REACTIONS (5)
  - BURNING MOUTH SYNDROME [None]
  - DISABILITY [None]
  - EATING DISORDER [None]
  - IMPAIRED WORK ABILITY [None]
  - SPEECH DISORDER [None]
